FAERS Safety Report 25810038 (Version 2)
Quarter: 2025Q3

REPORT INFORMATION
  Report Type: Spontaneous
  Country: CN (occurrence: CN)
  Receive Date: 20250917
  Receipt Date: 20250925
  Transmission Date: 20251021
  Serious: Yes (Death, Life-Threatening, Hospitalization, Other)
  Sender: ALKEM
  Company Number: None

PATIENT
  Age: 42 Year
  Sex: Male

DRUGS (3)
  1. MYCOPHENOLATE MOFETIL [Suspect]
     Active Substance: MYCOPHENOLATE MOFETIL
     Indication: Anti-neutrophil cytoplasmic antibody positive vasculitis
     Dosage: 0.5 GRAM, BID
     Route: 065
  2. METHYLPREDNISOLONE [Suspect]
     Active Substance: METHYLPREDNISOLONE
     Indication: Anti-neutrophil cytoplasmic antibody positive vasculitis
     Dosage: 28 MILLIGRAM, QD
     Route: 048
  3. METHYLPREDNISOLONE [Suspect]
     Active Substance: METHYLPREDNISOLONE
     Dosage: 8 MILLIGRAM, QD
     Route: 048

REACTIONS (9)
  - Circulatory collapse [Fatal]
  - Lymphoma [Fatal]
  - Condition aggravated [Fatal]
  - Systemic infection [Fatal]
  - Respiratory failure [Unknown]
  - Pneumonia [Unknown]
  - Epstein-Barr virus infection [Unknown]
  - Staphylococcal infection [Unknown]
  - Candida infection [Unknown]

NARRATIVE: CASE EVENT DATE: 20240101
